FAERS Safety Report 12550604 (Version 2)
Quarter: 2016Q3

REPORT INFORMATION
  Report Type: Report from Study
  Country: US (occurrence: US)
  Receive Date: 20160712
  Receipt Date: 20160725
  Transmission Date: 20161109
  Serious: Yes (Other)
  Sender: FDA-Public Use
  Company Number: US-AMGEN-USACT2011045433

PATIENT
  Sex: Female

DRUGS (3)
  1. DENOSUMAB [Suspect]
     Active Substance: DENOSUMAB
     Indication: EXPOSURE VIA FATHER
     Dosage: 120 MG, Q4WK
     Route: 050
     Dates: start: 20100309
  2. SYNTHROID [Concomitant]
     Active Substance: LEVOTHYROXINE SODIUM
     Dosage: 50 MUG, QD
     Route: 048
     Dates: start: 201102, end: 20110520
  3. PRENATAL                           /00231801/ [Concomitant]
     Active Substance: VITAMINS
     Dosage: UNK UNK, QD
     Route: 048
     Dates: start: 20100730, end: 20110630

REACTIONS (5)
  - Hypothyroidism [Unknown]
  - Haemorrhage [Unknown]
  - Gestational hypertension [Unknown]
  - Caesarean section [Unknown]
  - Exposure via father [Recovered/Resolved]
